FAERS Safety Report 5005921-7 (Version None)
Quarter: 2006Q2

REPORT INFORMATION
  Report Type: 
  Country: None (occurrence: None)
  Receive Date: 20060517
  Receipt Date: 20060517
  Transmission Date: 20061013
  Serious: Yes (Hospitalization)
  Sender: FDA-Public Use
  Company Number: None

PATIENT
  Age: 55 Year
  Sex: Female
  Weight: 114.7147 kg

DRUGS (1)
  1. TAXOTERE [Suspect]
     Indication: BREAST CANCER
     Dosage: 100MG/M2  DAY 1  EVERY 14 DAYS IV
     Route: 042
     Dates: start: 20060309, end: 20060323

REACTIONS (3)
  - ALVEOLITIS ALLERGIC [None]
  - HYPOXIA [None]
  - PULMONARY OEDEMA [None]
